FAERS Safety Report 8502643-2 (Version None)
Quarter: 2012Q3

REPORT INFORMATION
  Report Type: 
  Country: None (occurrence: None)
  Receive Date: 20120711
  Receipt Date: 20120525
  Transmission Date: 20120928
  Serious: Yes (Death, Life-Threatening, Hospitalization, Other)
  Sender: FDA-Public Use
  Company Number: PL-CELGENEUS-129-50794-12020826

PATIENT
  Sex: Male

DRUGS (5)
  1. VIDAZA [Suspect]
  2. NEXIUM [Concomitant]
     Indication: GASTROINTESTINAL ULCER
     Route: 065
  3. ACENOCUMAROL [Concomitant]
     Indication: ATRIAL FIBRILLATION
     Route: 065
  4. VIDAZA [Suspect]
     Route: 058
     Dates: start: 20110822, end: 20111205
  5. PROTIFAR [Concomitant]
     Indication: MALNUTRITION
     Route: 065

REACTIONS (9)
  - ISCHAEMIC STROKE [None]
  - CACHEXIA [None]
  - PULMONARY OEDEMA [None]
  - RENAL FAILURE [None]
  - MULTI-ORGAN FAILURE [None]
  - PNEUMONIA [None]
  - ATRIAL FIBRILLATION [None]
  - ANAEMIA [None]
  - PULMONARY EMBOLISM [None]
